FAERS Safety Report 4529379-7 (Version None)
Quarter: 2004Q4

REPORT INFORMATION
  Report Type: 
  Country: None (occurrence: None)
  Receive Date: 20041214
  Receipt Date: 20041201
  Transmission Date: 20050328
  Serious: No
  Sender: FDA-Public Use
  Company Number: 2004AP06152

PATIENT
  Age: 19 Year
  Sex: Female
  Weight: 33.4 kg

DRUGS (2)
  1. DIPRIVAN [Suspect]
     Indication: SEDATION
     Dosage: 1% DAILY IV
     Route: 042
  2. MIDAZOLAM HCL [Concomitant]

REACTIONS (4)
  - FEAR [None]
  - HYPERTHERMIA [None]
  - HYPERTONIA [None]
  - STRESS SYMPTOMS [None]
